FAERS Safety Report 6381277-2 (Version None)
Quarter: 2009Q3

REPORT INFORMATION
  Report Type: 
  Country: None (occurrence: None)
  Receive Date: 20090929
  Receipt Date: 20090917
  Transmission Date: 20100115
  Serious: Yes (Hospitalization)
  Sender: FDA-Public Use
  Company Number: FR-PFIZER INC-2009270805

PATIENT
  Age: 51 Year

DRUGS (9)
  1. VFEND [Suspect]
     Indication: ASPERGILLOSIS
     Dosage: UNK
     Route: 042
     Dates: start: 20090105, end: 20090120
  2. XANAX [Suspect]
     Indication: ANXIETY
     Dosage: UNK
     Route: 048
     Dates: start: 20090117, end: 20090120
  3. DEBRIDAT [Suspect]
     Indication: PAIN
     Dosage: UNK
     Route: 042
     Dates: start: 20090115, end: 20090120
  4. ZOPHREN [Suspect]
     Dosage: UNK
     Route: 042
     Dates: start: 20090117, end: 20090120
  5. DIPRIVAN [Suspect]
     Dosage: UNK
     Route: 042
     Dates: start: 20090113, end: 20090120
  6. ERYTHROCINE [Suspect]
     Indication: INFECTION
     Dosage: UNK
     Route: 042
     Dates: start: 20090115, end: 20090125
  7. ACUPAN [Suspect]
     Dosage: UNK
     Route: 042
     Dates: start: 20090116, end: 20090120
  8. MOTILIUM [Suspect]
     Dosage: UNK
     Route: 048
     Dates: start: 20090115, end: 20090120
  9. GRANOCYTE [Suspect]
     Dosage: UNK
     Route: 042
     Dates: start: 20090107, end: 20090118

REACTIONS (2)
  - HYPOTENSION [None]
  - SINUS BRADYCARDIA [None]
